FAERS Safety Report 5075072-4 (Version None)
Quarter: 2006Q3

REPORT INFORMATION
  Report Type: 
  Country: None (occurrence: None)
  Receive Date: 20060803
  Receipt Date: 20060803
  Transmission Date: 20061208
  Serious: Yes (Hospitalization)
  Sender: FDA-Public Use
  Company Number: None

PATIENT
  Sex: Female

DRUGS (5)
  1. LIPITOR [Suspect]
     Indication: HYPERLIPIDAEMIA
     Dosage: 40 MG   ONCE DAILY  PO
     Route: 048
     Dates: start: 20060301, end: 20060428
  2. ATENELOL [Concomitant]
  3. COLCHINE [Concomitant]
  4. OSCAL [Concomitant]
  5. FERROUS SULFATE TAB [Concomitant]

REACTIONS (7)
  - ABASIA [None]
  - BLOOD CREATINE PHOSPHOKINASE INCREASED [None]
  - BLOOD CREATININE INCREASED [None]
  - BLOOD UREA INCREASED [None]
  - CHROMATURIA [None]
  - MYALGIA [None]
  - URINE ODOUR ABNORMAL [None]
